FAERS Safety Report 9889076 (Version 1)
Quarter: 2014Q1

REPORT INFORMATION
  Report Type: Spontaneous
  Country: US (occurrence: None)
  Receive Date: 20140207
  Receipt Date: 20140207
  Transmission Date: 20141002
  Serious: Yes (Other)
  Sender: FDA-Public Use
  Company Number: 2014AP000933

PATIENT
  Age: 50 Year
  Sex: Female

DRUGS (2)
  1. ALENDRONATE SODIUM TABLETS [Suspect]
     Dosage: UNK
  2. CONTRACEPTIVES [Concomitant]

REACTIONS (1)
  - Atypical femur fracture [None]
